FAERS Safety Report 4611884-6 (Version None)
Quarter: 2005Q2

REPORT INFORMATION
  Report Type: 
  Country: None (occurrence: None)
  Receive Date: 20050308
  Receipt Date: 20050121
  Transmission Date: 20051028
  Serious: Yes (Other)
  Sender: FDA-Public Use
  Company Number: 2005UW01087

PATIENT
  Age: 61 Year
  Sex: Male
  Weight: 74.842 kg

DRUGS (4)
  1. CRESTOR [Suspect]
     Indication: BLOOD CHOLESTEROL INCREASED
     Dates: start: 20040401, end: 20041001
  2. TOPROL-XL [Concomitant]
  3. PLAVIX [Concomitant]
  4. ASPIRIN [Concomitant]

REACTIONS (4)
  - CARDIOVASCULAR DISORDER [None]
  - HEPATIC ENZYME INCREASED [None]
  - HYPERTENSION [None]
  - MYALGIA [None]
